FAERS Safety Report 4501704-2 (Version None)
Quarter: 2004Q3

REPORT INFORMATION
  Report Type: 
  Country: None (occurrence: None)
  Receive Date: 20040927
  Receipt Date: 20040528
  Transmission Date: 20050211
  Serious: No
  Sender: FDA-Public Use
  Company Number: USA040361727

PATIENT
  Age: 29 Year
  Sex: Male
  Weight: 84 kg

DRUGS (1)
  1. STRATTERA [Suspect]
     Indication: ATTENTION DEFICIT/HYPERACTIVITY DISORDER
     Dosage: 60 MG/1 DAY
     Dates: start: 20040215

REACTIONS (6)
  - ANOREXIA [None]
  - ERECTILE DYSFUNCTION [None]
  - HYPERHIDROSIS [None]
  - SEXUAL DYSFUNCTION [None]
  - VOMITING [None]
  - WEIGHT DECREASED [None]
